FAERS Safety Report 11319103 (Version 2)
Quarter: 2015Q3

REPORT INFORMATION
  Report Type: Spontaneous
  Country: US (occurrence: None)
  Receive Date: 20150727
  Receipt Date: 20150821
  Transmission Date: 20151125
  Serious: Yes (Hospitalization)
  Sender: FDA-Public Use
  Company Number: 1713747-2015-999227

PATIENT
  Age: 75 Year
  Sex: Male

DRUGS (15)
  1. SYNTHROID [Concomitant]
     Active Substance: LEVOTHYROXINE SODIUM
  2. ZOCOR [Concomitant]
     Active Substance: SIMVASTATIN
  3. PACERONE [Concomitant]
     Active Substance: AMIODARONE HYDROCHLORIDE
  4. COLACE [Concomitant]
     Active Substance: DOCUSATE SODIUM
  5. SENOKOT [Concomitant]
     Active Substance: SENNOSIDES
  6. LIBERTY CYCLER [Concomitant]
     Active Substance: DEVICE
  7. HUMALOG [Concomitant]
     Active Substance: INSULIN LISPRO
  8. COUMADIN [Concomitant]
     Active Substance: WARFARIN SODIUM
  9. MULTIVITAMIN [Concomitant]
     Active Substance: VITAMINS
  10. DELFLEX [Suspect]
     Active Substance: CALCIUM CHLORIDE\DEXTROSE MONOHYDRATE\MAGNESIUM CHLORIDE\SODIUM CHLORIDE\SODIUM LACTATE
     Indication: PERITONEAL DIALYSIS
     Route: 033
  11. NPH INSULIN [Concomitant]
     Active Substance: INSULIN BEEF
  12. ZOLOFT [Concomitant]
     Active Substance: SERTRALINE HYDROCHLORIDE
  13. LIBERTY CYCLER SET [Concomitant]
     Active Substance: DEVICE
  14. POTASSIUM CHLORIDE. [Concomitant]
     Active Substance: POTASSIUM CHLORIDE
  15. MELATONIN [Concomitant]
     Active Substance: MELATONIN

REACTIONS (3)
  - Hyperglycaemia [None]
  - Fall [None]
  - Asthenia [None]

NARRATIVE: CASE EVENT DATE: 20150624
